FAERS Safety Report 7135599-8 (Version None)
Quarter: 2010Q4

REPORT INFORMATION
  Report Type: 
  Country: None (occurrence: None)
  Receive Date: 20101203
  Receipt Date: 20101130
  Transmission Date: 20110411
  Serious: Yes (Death, Other)
  Sender: FDA-Public Use
  Company Number: PHHY2010JP76500

PATIENT
  Age: 35 Year
  Sex: Female

DRUGS (1)
  1. GLIVEC [Suspect]
     Indication: ACUTE BIPHENOTYPIC LEUKAEMIA
     Route: 048

REACTIONS (2)
  - CHRONIC GRAFT VERSUS HOST DISEASE [None]
  - STEM CELL TRANSPLANT [None]
